FAERS Safety Report 15075518 (Version 1)
Quarter: 2018Q2

REPORT INFORMATION
  Report Type: Spontaneous
  Country: US (occurrence: US)
  Receive Date: 20180627
  Receipt Date: 20180627
  Transmission Date: 20180711
  Serious: Yes (Other)
  Sender: FDA-Public Use
  Company Number: US-SAOL THERAPEUTICS-2018SAO00709

PATIENT
  Age: 59 Year
  Sex: Female
  Weight: 113.38 kg

DRUGS (4)
  1. DILAUDID [Suspect]
     Active Substance: HYDROMORPHONE HYDROCHLORIDE
     Dosage: 1.5 MG, \DAY
     Dates: start: 20180503
  2. BACLOFEN. [Suspect]
     Active Substance: BACLOFEN
     Indication: POST LAMINECTOMY SYNDROME
     Dosage: 60 ?G, \DAY
     Dates: start: 20180503
  3. DILAUDID [Suspect]
     Active Substance: HYDROMORPHONE HYDROCHLORIDE
     Dosage: 5.1 MG, \DAY
     Route: 037
     Dates: end: 20180503
  4. BACLOFEN. [Suspect]
     Active Substance: BACLOFEN
     Indication: PAIN
     Dosage: 90 ?G, \DAY
     Route: 037
     Dates: end: 20180503

REACTIONS (5)
  - Pain [Recovered/Resolved]
  - Device programming error [Unknown]
  - Complication associated with device [Recovered/Resolved]
  - Somnolence [Recovered/Resolved]
  - Off label use [Not Recovered/Not Resolved]

NARRATIVE: CASE EVENT DATE: 201801
